FAERS Safety Report 16339588 (Version 3)
Quarter: 2021Q2

REPORT INFORMATION
  Report Type: Spontaneous
  Country: US (occurrence: US)
  Receive Date: 20190521
  Receipt Date: 20210414
  Transmission Date: 20210716
  Serious: No
  Sender: FDA-Public Use
  Company Number: US-SA-2019SA136849

PATIENT
  Age: 29 Year
  Sex: Female

DRUGS (24)
  1. MODAFINIL. [Concomitant]
     Active Substance: MODAFINIL
  2. SERTRALINE [Concomitant]
     Active Substance: SERTRALINE HYDROCHLORIDE
  3. MONTELUKAST [Concomitant]
     Active Substance: MONTELUKAST SODIUM
  4. HIDROXIZINA [HYDROXYZINE HYDROCHLORIDE] [Concomitant]
  5. METHOTREXATE. [Concomitant]
     Active Substance: METHOTREXATE
  6. MODAFINIL. [Concomitant]
     Active Substance: MODAFINIL
  7. RANITIDINE. [Concomitant]
     Active Substance: RANITIDINE
  8. ETODOLAC. [Concomitant]
     Active Substance: ETODOLAC
  9. FOLIC ACID. [Concomitant]
     Active Substance: FOLIC ACID
  10. DOXYCYCLINE. [Concomitant]
     Active Substance: DOXYCYCLINE
  11. HYDROXYCHLOROQUINE [Concomitant]
     Active Substance: HYDROXYCHLOROQUINE
  12. ASHLYNA [Concomitant]
     Active Substance: ETHINYL ESTRADIOL\LEVONORGESTREL
  13. SERTRALINE [Concomitant]
     Active Substance: SERTRALINE HYDROCHLORIDE
  14. XIFAXAN [Concomitant]
     Active Substance: RIFAXIMIN
  15. GABAPENTIN. [Concomitant]
     Active Substance: GABAPENTIN
  16. CELECOXIB. [Concomitant]
     Active Substance: CELECOXIB
  17. DUPIXENT [Suspect]
     Active Substance: DUPILUMAB
     Indication: DERMATITIS ATOPIC
     Dosage: 600 MG, 1X
     Route: 058
     Dates: start: 20190503, end: 20190503
  18. DUPIXENT [Suspect]
     Active Substance: DUPILUMAB
     Dosage: 300 MG, QOW
     Route: 058
  19. MONTELUKAST [Concomitant]
     Active Substance: MONTELUKAST SODIUM
  20. PAROXETINE. [Concomitant]
     Active Substance: PAROXETINE
  21. DICLOFENAC [Concomitant]
     Active Substance: DICLOFENAC
  22. FOLIC ACID. [Concomitant]
     Active Substance: FOLIC ACID
  23. MELOXICAM. [Concomitant]
     Active Substance: MELOXICAM
  24. FAMOTIDINE. [Concomitant]
     Active Substance: FAMOTIDINE

REACTIONS (2)
  - Dermatitis atopic [Not Recovered/Not Resolved]
  - Rash [Recovering/Resolving]

NARRATIVE: CASE EVENT DATE: 201905
